FAERS Safety Report 20531364 (Version 3)
Quarter: 2022Q1

REPORT INFORMATION
  Report Type: Spontaneous
  Country: US (occurrence: US)
  Receive Date: 20220301
  Receipt Date: 20220330
  Transmission Date: 20220424
  Serious: No
  Sender: FDA-Public Use
  Company Number: US-SA-SAC20220217001457

PATIENT
  Age: 48 Year
  Sex: Female

DRUGS (1)
  1. DUPIXENT [Suspect]
     Active Substance: DUPILUMAB
     Indication: Asthma
     Dosage: 300 MG, QOW
     Route: 058

REACTIONS (6)
  - Urticaria [Unknown]
  - Pruritus [Unknown]
  - Adverse reaction [Unknown]
  - Product storage error [Unknown]
  - Therapeutic product effect decreased [Unknown]
  - Product use issue [Unknown]
